FAERS Safety Report 19812027 (Version 1)
Quarter: 2021Q3

REPORT INFORMATION
  Report Type: Spontaneous
  Country: US (occurrence: US)
  Receive Date: 20210910
  Receipt Date: 20210910
  Transmission Date: 20211014
  Serious: Yes (Other)
  Sender: FDA-Public Use
  Company Number: US-SPECGX-T202102065

PATIENT
  Sex: Male

DRUGS (2)
  1. HEROIN [Suspect]
     Active Substance: DIAMORPHINE
     Indication: ARTHRALGIA
     Dosage: UNK, INJECTED ON THE DAY TO ED
     Route: 065
  2. FENTANYL CITRATE. [Suspect]
     Active Substance: FENTANYL CITRATE
     Indication: ARTHRALGIA
     Dosage: UNK, INJECTED ON THE DAY TO ED
     Route: 065

REACTIONS (5)
  - Withdrawal syndrome [Unknown]
  - Product use issue [Unknown]
  - Somnolence [Unknown]
  - Drug use disorder [Unknown]
  - Arthritis bacterial [Unknown]
